FAERS Safety Report 7033411-9 (Version None)
Quarter: 2010Q4

REPORT INFORMATION
  Report Type: 
  Country: None (occurrence: None)
  Receive Date: 20101007
  Receipt Date: 20100925
  Transmission Date: 20110411
  Serious: Yes (Other)
  Sender: FDA-Public Use
  Company Number: CN-PFIZER INC-2010121765

PATIENT
  Sex: Female
  Weight: 40 kg

DRUGS (2)
  1. PHARMORUBICIN [Suspect]
     Indication: BREAST CANCER
  2. PHARMORUBICIN [Suspect]
     Indication: LYMPH NODE CANCER METASTATIC

REACTIONS (3)
  - ECZEMA [None]
  - FLUSHING [None]
  - SWELLING FACE [None]
